FAERS Safety Report 14380978 (Version 2)
Quarter: 2018Q4

REPORT INFORMATION
  Report Type: Report from Study
  Country: GB (occurrence: GB)
  Receive Date: 20180112
  Receipt Date: 20181207
  Transmission Date: 20190204
  Serious: Yes (Death, Other)
  Sender: FDA-Public Use
  Company Number: GB-B.I. PHARMACEUTICALS,INC./RIDGEFIELD-2018-BI-001793

PATIENT

DRUGS (4)
  1. PERSANTIN [Suspect]
     Active Substance: DIPYRIDAMOLE
     Indication: CEREBRAL ISCHAEMIA
     Route: 048
  2. PERSANTIN [Suspect]
     Active Substance: DIPYRIDAMOLE
     Dosage: FREQUENCY 3 OR 4 TIMES A DAILY
     Route: 050
  3. CLOPIDOGREL [Concomitant]
     Active Substance: CLOPIDOGREL BISULFATE
     Indication: PRODUCT USED FOR UNKNOWN INDICATION
     Dosage: (300 MG LOAD THEN 75 MG DAILY, GIVEN BY ORAL OR NASOGASTRIC ROUTES)
     Route: 050
  4. ASPIRIN. [Concomitant]
     Active Substance: ASPIRIN
     Indication: PRODUCT USED FOR UNKNOWN INDICATION
     Dosage: (300 MG LOAD THEN 50-150 MG DAILY, TYPICALLY 75 MG, GIVEN BY ORAL, NASOGASTRIC, OR RECTAL ROUTES)
     Route: 050

REACTIONS (1)
  - Pulmonary embolism [Fatal]
